FAERS Safety Report 4360207-9 (Version None)
Quarter: 2004Q2

REPORT INFORMATION
  Report Type: 
  Country: None (occurrence: None)
  Receive Date: 20040513
  Receipt Date: 20040429
  Transmission Date: 20050107
  Serious: Yes (Death)
  Sender: FDA-Public Use
  Company Number: 04P-163-0259172-00

PATIENT
  Age: 58 Year
  Sex: Male

DRUGS (2)
  1. WARFARIN (WARFARIN SODIUM)  (WARFARIN SODIUM) [Suspect]
     Indication: PHLEBOTHROMBOSIS
     Dosage: 10 MG PER DAY
  2. UNFRACTIONATED HEPARIN [Concomitant]

REACTIONS (3)
  - FIBRIN DEGRADATION PRODUCTS INCREASED [None]
  - SEPSIS [None]
  - SKIN NECROSIS [None]
